FAERS Safety Report 7251432-8 (Version None)
Quarter: 2011Q1

REPORT INFORMATION
  Report Type: 
  Country: None (occurrence: None)
  Receive Date: 20110128
  Receipt Date: 20110122
  Transmission Date: 20110831
  Serious: Yes (Hospitalization)
  Sender: FDA-Public Use
  Company Number: JP-PFIZER INC-2011016151

PATIENT
  Age: 41 Year
  Sex: Female

DRUGS (16)
  1. CRAVIT [Suspect]
  2. NABOAL - SLOW RELEASE [Suspect]
  3. PREDNISOLONE [Concomitant]
     Dosage: 60 MG DAILY
     Dates: start: 20101220, end: 20101220
  4. ASPIRIN [Concomitant]
     Dosage: 100 MG DAILY
     Dates: start: 20110111
  5. LIPITOR [Suspect]
     Dosage: 10 MG, 1X/DAY
     Route: 048
     Dates: start: 20101228
  6. MINOCIN [Suspect]
  7. LOXONIN [Suspect]
  8. PREDNISOLONE [Concomitant]
     Dosage: 45 MG, 1X/DAY
     Dates: start: 20101201, end: 20101219
  9. ALENDRONATE SODIUM [Concomitant]
     Dosage: 35 MG DAILY
     Dates: start: 20101201
  10. MEIACT [Suspect]
  11. LENDORMIN [Suspect]
  12. MAG-LAX [Concomitant]
     Dosage: 990 MG DAILY
     Route: 048
  13. FUNGIZONE [Concomitant]
     Dosage: 12 ML DAILY
     Dates: start: 20101227
  14. LANSOPRAZOLE [Concomitant]
     Dosage: 30 MG DAILY
     Route: 048
     Dates: start: 20101224
  15. PREDNISOLONE [Concomitant]
     Dosage: 90 MG DAILY
     Dates: start: 20101221
  16. PREDNISOLONE [Concomitant]
     Dosage: 35 MG DAILY
     Dates: start: 20110122

REACTIONS (2)
  - WHITE BLOOD CELL COUNT DECREASED [None]
  - PYREXIA [None]
